FAERS Safety Report 5995386 (Version 3)
Quarter: 2016Q1

REPORT INFORMATION
  Report Type: Spontaneous
  Country: US (occurrence: US)
  Receive Date: 20060228
  Receipt Date: 20160208
  Transmission Date: 20160526
  Serious: No
  Sender: FDA-Public Use
  Company Number: US-GLAXOSMITHKLINE-A0575708A

PATIENT
  Age: 56 Year
  Sex: Female

DRUGS (11)
  1. IMITREX [Suspect]
     Active Substance: SUMATRIPTAN SUCCINATE
     Dosage: UNK
  2. AMITRIPTYLINE [Concomitant]
     Active Substance: AMITRIPTYLINE
  3. DHEA [Concomitant]
     Active Substance: PRASTERONE
  4. IMITREX [Suspect]
     Active Substance: SUMATRIPTAN SUCCINATE
     Dosage: UNK
     Route: 042
  5. BUSPAR [Concomitant]
     Active Substance: BUSPIRONE HYDROCHLORIDE
  6. IMITREX [Suspect]
     Active Substance: SUMATRIPTAN SUCCINATE
     Indication: MIGRAINE
     Route: 058
  7. ZOMIG [Concomitant]
     Active Substance: ZOLMITRIPTAN
  8. CLONAZEPAM. [Concomitant]
     Active Substance: CLONAZEPAM
  9. SYNTHROID [Concomitant]
     Active Substance: LEVOTHYROXINE SODIUM
  10. DOXEPIN [Concomitant]
     Active Substance: DOXEPIN
  11. EXCEDRIN MIGRAINE [Concomitant]
     Active Substance: ACETAMINOPHEN\ASPIRIN\CAFFEINE

REACTIONS (7)
  - Product quality issue [Unknown]
  - Injection site irritation [Unknown]
  - Intentional product use issue [Unknown]
  - Drug ineffective [Unknown]
  - Injection site pain [Recovered/Resolved]
  - Underdose [Unknown]
  - Expired product administered [Unknown]

NARRATIVE: CASE EVENT DATE: 20050919
